FAERS Safety Report 9006112 (Version 2)
Quarter: 2013Q1

REPORT INFORMATION
  Report Type: Spontaneous
  Country: US (occurrence: US)
  Receive Date: 20130109
  Receipt Date: 20130115
  Transmission Date: 20140127
  Serious: Yes (Death, Hospitalization)
  Sender: FDA-Public Use
  Company Number: PHEH2013US000743

PATIENT
  Age: 64 Year
  Sex: Female

DRUGS (9)
  1. AFINITOR [Suspect]
     Indication: BREAST CANCER
     Dosage: 7.5 MG, QD
     Route: 048
     Dates: start: 201211
  2. CYMBALTA [Concomitant]
     Dosage: 20 MG, UNK
  3. KLONOPIN [Concomitant]
     Dosage: 1 MG, UNK
  4. ZOCOR [Concomitant]
     Dosage: 40 MG, UNK
  5. CELEBREX [Concomitant]
     Dosage: 100 MG, UNK
  6. AMLODIPINE [Concomitant]
     Dosage: 2.5 MG, UNK
  7. ALLEGRA-D [Concomitant]
  8. GABAPENTIN [Concomitant]
     Dosage: 300 MG, UNK
  9. NEXIUM [Concomitant]
     Dosage: 40 MG, UNK

REACTIONS (4)
  - Death [Fatal]
  - Infection [Unknown]
  - White blood cell count decreased [Unknown]
  - Platelet count decreased [Unknown]
